FAERS Safety Report 21817963 (Version 1)
Quarter: 2023Q1

REPORT INFORMATION
  Report Type: Spontaneous
  Country: US (occurrence: US)
  Receive Date: 20230104
  Receipt Date: 20230104
  Transmission Date: 20230417
  Serious: Yes (Other)
  Sender: FDA-Public Use
  Company Number: US-COOPERSURGICAL, INC.-US-2022CPS000054

PATIENT
  Sex: Female
  Weight: 80.726 kg

DRUGS (1)
  1. PARAGARD T 380A [Suspect]
     Active Substance: COPPER
     Indication: Contraception
     Dosage: UNK
     Route: 015
     Dates: start: 202106, end: 20211230

REACTIONS (7)
  - Uterine perforation [Recovered/Resolved]
  - Pelvic pain [Recovered/Resolved]
  - Device expulsion [Recovered/Resolved]
  - Abnormal uterine bleeding [Unknown]
  - Dyspareunia [Recovered/Resolved]
  - Menstruation irregular [Unknown]
  - Pain [Unknown]

NARRATIVE: CASE EVENT DATE: 20210101
